FAERS Safety Report 15696482 (Version 1)
Quarter: 2018Q4

REPORT INFORMATION
  Report Type: Spontaneous
  Country: RU (occurrence: RU)
  Receive Date: 20181206
  Receipt Date: 20181206
  Transmission Date: 20190205
  Serious: Yes (Hospitalization)
  Sender: FDA-Public Use
  Company Number: PHHY2018RU177375

PATIENT
  Age: 4 Year
  Sex: Male
  Weight: 15 kg

DRUGS (5)
  1. AMOKSIKLAV [Suspect]
     Active Substance: AMOXICILLIN\CLAVULANATE POTASSIUM
     Indication: RESPIRATORY TRACT INFECTION VIRAL
     Dosage: UNKNOWN ML / 6 NL
     Route: 048
     Dates: start: 20170919, end: 20170919
  2. BROMHEXIN [Concomitant]
     Active Substance: BROMHEXINE
     Indication: RESPIRATORY TRACT INFECTION VIRAL
     Dosage: UNK
     Route: 048
     Dates: start: 20170915, end: 20170920
  3. PANADOL [Concomitant]
     Active Substance: ACETAMINOPHEN
     Indication: RESPIRATORY TRACT INFECTION VIRAL
     Dosage: UNK
     Route: 045
     Dates: start: 20170915, end: 20170920
  4. NASIVIN [Concomitant]
     Active Substance: OXYMETAZOLINE
     Indication: RESPIRATORY TRACT INFECTION VIRAL
     Dosage: UNK
     Route: 045
     Dates: start: 20170915, end: 20170920
  5. AQUA MARIS PLUS [Concomitant]
     Indication: RESPIRATORY TRACT INFECTION VIRAL
     Dosage: UNK
     Route: 045
     Dates: start: 20170915, end: 20170920

REACTIONS (1)
  - Dyspnoea [Not Recovered/Not Resolved]

NARRATIVE: CASE EVENT DATE: 20170921
